FAERS Safety Report 8886310 (Version 2)
Quarter: 2012Q4

REPORT INFORMATION
  Report Type: 
  Country: US (occurrence: US)
  Receive Date: 20121105
  Receipt Date: 20121214
  Transmission Date: 20130627
  Serious: No
  Sender: FDA-Public Use
  Company Number: US-ASTRAZENECA-2012SE81366

PATIENT
  Age: 19 Year
  Sex: Male
  Weight: 72.6 kg

DRUGS (5)
  1. SYMBICORT [Suspect]
     Indication: ASTHMA
     Dosage: 80, BID
     Route: 055
  2. SYMBICORT [Suspect]
     Indication: ASTHMA
     Dosage: 2 PUFF BID
     Route: 055
     Dates: start: 20120215
  3. ALBUTEROL [Concomitant]
  4. OTC ANTIHISTAMINES [Concomitant]
  5. NASAL STEROID SPRAY [Concomitant]

REACTIONS (1)
  - Alopecia [Unknown]
